FAERS Safety Report 6901831-6 (Version None)
Quarter: 2010Q3

REPORT INFORMATION
  Report Type: 
  Country: None (occurrence: None)
  Receive Date: 20100803
  Receipt Date: 20080320
  Transmission Date: 20110219
  Serious: Yes (Other)
  Sender: FDA-Public Use
  Company Number: US-PFIZER INC-2008026192

PATIENT
  Sex: Female
  Weight: 154.09 kg

DRUGS (8)
  1. LYRICA [Suspect]
     Indication: FIBROMYALGIA
     Route: 048
     Dates: start: 20080101, end: 20080313
  2. LYRICA [Suspect]
     Indication: ARTHRITIS
  3. NEURONTIN [Concomitant]
     Route: 048
  4. TOPAMAX [Concomitant]
     Route: 048
  5. METOPROLOL [Concomitant]
     Route: 048
  6. METFORMIN HCL [Concomitant]
     Route: 048
  7. PROTONIX [Concomitant]
     Route: 048
  8. CYMBALTA [Concomitant]
     Route: 048

REACTIONS (2)
  - FOOD CRAVING [None]
  - WEIGHT INCREASED [None]
